FAERS Safety Report 23321079 (Version 1)
Quarter: 2023Q4

REPORT INFORMATION
  Report Type: Spontaneous
  Country: AU (occurrence: AU)
  Receive Date: 20231220
  Receipt Date: 20231220
  Transmission Date: 20240110
  Serious: Yes (Other)
  Sender: FDA-Public Use
  Company Number: AU-PFIZER INC-PV202300168711

PATIENT
  Age: 71 Year
  Sex: Male

DRUGS (2)
  1. XALKORI [Suspect]
     Active Substance: CRIZOTINIB
     Indication: Uveal melanoma
     Dosage: 200 MG, 2X/DAY FOR 3 MONTHS
     Dates: start: 20231102
  2. DAROVASERTIB [Concomitant]
     Active Substance: DAROVASERTIB
     Dosage: UNK
     Dates: start: 20231026

REACTIONS (5)
  - Colitis [Unknown]
  - Upper gastrointestinal haemorrhage [Unknown]
  - Skin lesion [Recovered/Resolved]
  - Pain [Recovered/Resolved]
  - Off label use [Unknown]
